FAERS Safety Report 13864256 (Version 2)
Quarter: 2017Q3

REPORT INFORMATION
  Report Type: Report from Study
  Country: DE (occurrence: DE)
  Receive Date: 20170814
  Receipt Date: 20170818
  Transmission Date: 20171127
  Serious: Yes (Hospitalization)
  Sender: FDA-Public Use
  Company Number: DE-CELGENEUS-DEU-20170800104

PATIENT
  Age: 69 Year
  Sex: Female
  Weight: 59 kg

DRUGS (2)
  1. ABRAXANE [Suspect]
     Active Substance: PACLITAXEL
     Indication: TRIPLE NEGATIVE BREAST CANCER
     Dosage: 28.5714 MILLIGRAM
     Route: 041
     Dates: start: 20170713
  2. MEDI4736 (DURVALUMAB) [Suspect]
     Active Substance: DURVALUMAB
     Indication: TRIPLE NEGATIVE BREAST CANCER
     Dosage: 53.5714 MILLIGRAM
     Route: 041
     Dates: start: 20170713

REACTIONS (1)
  - Circulatory collapse [Recovered/Resolved]

NARRATIVE: CASE EVENT DATE: 20170726
